FAERS Safety Report 8716440 (Version 2)
Quarter: 2013Q4

REPORT INFORMATION
  Report Type: Spontaneous
  Country: US (occurrence: US)
  Receive Date: 20120810
  Receipt Date: 20131106
  Transmission Date: 20140711
  Serious: Yes (Other)
  Sender: FDA-Public Use
  Company Number: US-009507513-1207USA011526

PATIENT
  Sex: Male

DRUGS (7)
  1. VICTRELIS [Suspect]
     Route: 048
  2. PEGASYS [Suspect]
     Dosage: 180 UNK, UNK
     Route: 058
  3. COPEGUS [Suspect]
     Dosage: 600 UNK, UNK
     Route: 048
  4. PROCRIT [Concomitant]
     Route: 011
  5. XANAX [Concomitant]
  6. NEUPOGEN [Concomitant]
  7. LEXAPRO [Concomitant]

REACTIONS (15)
  - Fear [Unknown]
  - White blood cell count decreased [Unknown]
  - Anxiety [Unknown]
  - Dysgeusia [Unknown]
  - Abdominal pain upper [Unknown]
  - Depression [Unknown]
  - Insomnia [Unknown]
  - Bone pain [Unknown]
  - Musculoskeletal pain [Unknown]
  - Anger [Unknown]
  - Rash pruritic [Unknown]
  - Flatulence [Unknown]
  - Rash papular [Unknown]
  - Red blood cell count decreased [Unknown]
  - Nausea [Unknown]
